FAERS Safety Report 16263389 (Version 5)
Quarter: 2019Q4

REPORT INFORMATION
  Report Type: Spontaneous
  Country: US (occurrence: US)
  Receive Date: 20190502
  Receipt Date: 20191023
  Transmission Date: 20200122
  Serious: No
  Sender: FDA-Public Use
  Company Number: US-BIOGEN-2019BI00731553

PATIENT
  Sex: Male

DRUGS (2)
  1. TECFIDERA [Suspect]
     Active Substance: DIMETHYL FUMARATE
     Route: 048
     Dates: start: 201901
  2. TECFIDERA [Suspect]
     Active Substance: DIMETHYL FUMARATE
     Indication: MULTIPLE SCLEROSIS
     Route: 048
     Dates: start: 20181029

REACTIONS (11)
  - Intentional product misuse [Unknown]
  - Fatigue [Unknown]
  - Flushing [Unknown]
  - Rash [Unknown]
  - Decreased interest [Unknown]
  - Paraesthesia [Unknown]
  - Pyrexia [Unknown]
  - Hypoaesthesia [Unknown]
  - Erythema [Unknown]
  - Chills [Unknown]
  - Influenza like illness [Not Recovered/Not Resolved]
